FAERS Safety Report 8258544-0 (Version None)
Quarter: 2012Q2

REPORT INFORMATION
  Report Type: 
  Country: None (occurrence: None)
  Receive Date: 20120403
  Receipt Date: 20120403
  Transmission Date: 20120825
  Serious: Yes (Death)
  Sender: FDA-Public Use
  Company Number: None

PATIENT
  Sex: Female

DRUGS (1)
  1. RU486 [Suspect]

REACTIONS (2)
  - BETA HAEMOLYTIC STREPTOCOCCAL INFECTION [None]
  - SEPSIS [None]
